FAERS Safety Report 9670917 (Version 1)
Quarter: 2013Q4

REPORT INFORMATION
  Report Type: Report from Study
  Country: BR (occurrence: BR)
  Receive Date: 20131106
  Receipt Date: 20131106
  Transmission Date: 20140711
  Serious: Yes (Death, Hospitalization)
  Sender: FDA-Public Use
  Company Number: PHHY2013BR125472

PATIENT
  Sex: Male
  Weight: 80 kg

DRUGS (1)
  1. DIOVAN [Suspect]
     Indication: BLOOD PRESSURE
     Dosage: UNK UKN, UNK
     Route: 048

REACTIONS (3)
  - Cardiac arrest [Fatal]
  - Cerebrovascular accident [Unknown]
  - Speech disorder [Unknown]
